FAERS Safety Report 6580652-0 (Version None)
Quarter: 2010Q1

REPORT INFORMATION
  Report Type: 
  Country: None (occurrence: None)
  Receive Date: 20100212
  Receipt Date: 20100202
  Transmission Date: 20100710
  Serious: Yes (Other)
  Sender: FDA-Public Use
  Company Number: AU-ABBOTT-10P-008-0618736-00

PATIENT
  Age: 53 Year
  Sex: Female

DRUGS (4)
  1. CLARITHROMYCIN [Suspect]
     Indication: OROPHARYNGEAL PAIN
     Dosage: UNKNOWN BRAND, GENERIC WAS USED.
     Dates: start: 20100104
  2. LEVOTHYROXINE SODIUM [Concomitant]
     Indication: THYROID DISORDER
  3. NEO-CYTAMEN [Concomitant]
     Indication: PERNICIOUS ANAEMIA
  4. VITAMIN B-12 [Concomitant]
     Indication: DRUG USE FOR UNKNOWN INDICATION

REACTIONS (5)
  - BURNING SENSATION [None]
  - FEELING HOT [None]
  - PAIN [None]
  - SYNCOPE [None]
  - THYROID FUNCTION TEST ABNORMAL [None]
